FAERS Safety Report 8909932 (Version 6)
Quarter: 2013Q3

REPORT INFORMATION
  Report Type: Spontaneous
  Country: US (occurrence: US)
  Receive Date: 20121115
  Receipt Date: 20130704
  Transmission Date: 20140515
  Serious: No
  Sender: FDA-Public Use
  Company Number: US-PFIZER INC-2012283059

PATIENT
  Age: 63 Year
  Sex: Female
  Weight: 90.7 kg

DRUGS (8)
  1. CELEBREX [Suspect]
     Indication: ARTHRITIS
     Dosage: 200 MG, 1X/DAY
     Route: 048
     Dates: start: 2004
  2. CELEBREX [Suspect]
     Indication: OSTEOARTHRITIS
     Dosage: 200 MG, 1X/DAY
     Route: 048
     Dates: start: 2012
  3. CELEBREX [Suspect]
     Indication: ARTHRALGIA
     Dosage: 200 MG, 1X/DAY
     Route: 048
     Dates: start: 201301
  4. IBUPROFEN [Suspect]
     Indication: ARTHRALGIA
     Dosage: 600 MG, AS NEEDED
     Dates: end: 2013
  5. CYMBALTA [Concomitant]
     Dosage: UNK
  6. LAMITOR [Concomitant]
     Dosage: UNK
  7. AMILORIDE W/HYDROCHLOROTHIAZIDE [Concomitant]
     Indication: BLOOD PRESSURE ABNORMAL
     Dosage: AMILORIDE 5 MG / HYDROCHLOROTHIAZIDE 50 MG, ONCE DAILY
  8. EFFEXOR [Concomitant]
     Indication: BIPOLAR DISORDER
     Dosage: UNK

REACTIONS (2)
  - Pain [Unknown]
  - Contusion [Recovered/Resolved]
